FAERS Safety Report 7921786-5 (Version None)
Quarter: 2011Q4

REPORT INFORMATION
  Report Type: 
  Country: None (occurrence: None)
  Receive Date: 20111117
  Receipt Date: 20111102
  Transmission Date: 20120403
  Serious: Yes (Hospitalization)
  Sender: FDA-Public Use
  Company Number: NL-GLAXOSMITHKLINE-B0763072A

PATIENT
  Age: 43 Year
  Sex: Male

DRUGS (4)
  1. LEVODOPA [Suspect]
     Indication: PARKINSON'S DISEASE
     Route: 065
  2. CLONAZEPAM [Concomitant]
     Indication: AKATHISIA
     Dosage: 4MG FOUR TIMES PER DAY
     Route: 065
  3. ROPINIROLE [Suspect]
     Indication: PARKINSON'S DISEASE
     Dosage: 10MG FOUR TIMES PER DAY
     Route: 065
  4. TRAMADOL HCL [Concomitant]
     Indication: BACK PAIN
     Dosage: 50MG FOUR TIMES PER DAY
     Route: 065

REACTIONS (10)
  - DOPAMINE DYSREGULATION SYNDROME [None]
  - DEPENDENCE [None]
  - NEGLECT OF PERSONAL APPEARANCE [None]
  - ELEVATED MOOD [None]
  - INSOMNIA [None]
  - HYPOMANIA [None]
  - DYSARTHRIA [None]
  - DISINHIBITION [None]
  - THINKING ABNORMAL [None]
  - RESTLESSNESS [None]
